FAERS Safety Report 8524694-4 (Version None)
Quarter: 2012Q3

REPORT INFORMATION
  Report Type: 
  Country: None (occurrence: None)
  Receive Date: 20120720
  Receipt Date: 20120713
  Transmission Date: 20120928
  Serious: Yes (Other)
  Sender: FDA-Public Use
  Company Number: US-ROCHE-791088

PATIENT
  Sex: Male
  Weight: 52.21 kg

DRUGS (3)
  1. ACCUTANE [Suspect]
     Dates: start: 20020801, end: 20021201
  2. PROVENTIL [Concomitant]
  3. ACCUTANE [Suspect]
     Indication: ACNE
     Route: 065
     Dates: start: 20011001, end: 20020601

REACTIONS (4)
  - CHOLANGITIS SCLEROSING [None]
  - EMOTIONAL DISTRESS [None]
  - CROHN'S DISEASE [None]
  - INFLAMMATORY BOWEL DISEASE [None]
